FAERS Safety Report 14894909 (Version 6)
Quarter: 2018Q4

REPORT INFORMATION
  Report Type: Report from Study
  Country: FR (occurrence: FR)
  Receive Date: 20180515
  Receipt Date: 20181016
  Transmission Date: 20190204
  Serious: Yes (Hospitalization)
  Sender: FDA-Public Use
  Company Number: FR-ROCHE-2060642

PATIENT
  Age: 56 Year
  Sex: Female

DRUGS (8)
  1. OBINUTUZUMAB. [Suspect]
     Active Substance: OBINUTUZUMAB
     Indication: WALDENSTROM^S MACROGLOBULINAEMIA
     Dosage: DAY 1 CYCLE 1 (D1C1)
     Route: 041
     Dates: start: 20171220, end: 20171220
  2. SULFAMETHOXAZOLE/TRIMETHOPRIM [Suspect]
     Active Substance: SULFAMETHOXAZOLE\TRIMETHOPRIM
     Indication: INFECTION PROPHYLAXIS
     Dosage: 3 DOSAGE FORM
     Route: 065
     Dates: start: 20171220, end: 20171231
  3. OBINUTUZUMAB. [Suspect]
     Active Substance: OBINUTUZUMAB
     Dosage: DAY 2
     Route: 041
     Dates: start: 20171221, end: 20171221
  4. IDELALISIB [Suspect]
     Active Substance: IDELALISIB
     Indication: WALDENSTROM^S MACROGLOBULINAEMIA
     Dosage: D1C1
     Route: 048
     Dates: start: 20171220, end: 20171226
  5. IDELALISIB [Suspect]
     Active Substance: IDELALISIB
     Route: 048
     Dates: start: 20180106, end: 20180117
  6. IDELALISIB [Suspect]
     Active Substance: IDELALISIB
     Route: 048
     Dates: end: 20180323
  7. OBINUTUZUMAB. [Suspect]
     Active Substance: OBINUTUZUMAB
     Dosage: LAST ADMINISTRATION ON 27/DEC/2017 (INFERRED AS D8C1).?SUBSEQUENT ADMINISTRATION ON 26/JAN/2018 (C2D
     Route: 041
     Dates: start: 20171227, end: 20171227
  8. IDELALISIB [Suspect]
     Active Substance: IDELALISIB
     Route: 048
     Dates: start: 20180126, end: 20180323

REACTIONS (7)
  - Pruritus [Recovered/Resolved]
  - Hepatic enzyme increased [Recovered/Resolved]
  - Rash [Recovered/Resolved]
  - Neutropenia [Recovered/Resolved]
  - Anaemia [Not Recovered/Not Resolved]
  - C-reactive protein increased [Recovered/Resolved]
  - Pyrexia [Recovered/Resolved]

NARRATIVE: CASE EVENT DATE: 20171226
